FAERS Safety Report 4695083-8 (Version None)
Quarter: 2005Q2

REPORT INFORMATION
  Report Type: 
  Country: None (occurrence: None)
  Receive Date: 20050617
  Receipt Date: 20050607
  Transmission Date: 20051028
  Serious: Yes (Other)
  Sender: FDA-Public Use
  Company Number: 2005082567

PATIENT
  Age: 70 Year
  Sex: Male

DRUGS (1)
  1. PHENYTOIN SODIUM [Suspect]
     Indication: ILL-DEFINED DISORDER
     Dosage: 210 MG
     Dates: start: 20050514, end: 20050526

REACTIONS (2)
  - DYSPHAGIA [None]
  - MALABSORPTION [None]
